FAERS Safety Report 21844796 (Version 1)
Quarter: 2023Q1

REPORT INFORMATION
  Report Type: Spontaneous
  Country: US (occurrence: US)
  Receive Date: 20230110
  Receipt Date: 20230110
  Transmission Date: 20230417
  Serious: No
  Sender: FDA-Public Use
  Company Number: US-Blueprint Medicines Corporation-SP-US-2023-000049

PATIENT
  Sex: Female

DRUGS (1)
  1. AYVAKIT [Suspect]
     Active Substance: AVAPRITINIB
     Indication: Systemic mastocytosis
     Route: 048
     Dates: start: 20221004

REACTIONS (4)
  - Feeling abnormal [Not Recovered/Not Resolved]
  - Fluid retention [Not Recovered/Not Resolved]
  - Swelling [Not Recovered/Not Resolved]
  - Diarrhoea [Recovered/Resolved]
